FAERS Safety Report 6653839-6 (Version None)
Quarter: 2010Q1

REPORT INFORMATION
  Report Type: 
  Country: None (occurrence: None)
  Receive Date: 20100326
  Receipt Date: 20100319
  Transmission Date: 20100710
  Serious: Yes (Other)
  Sender: FDA-Public Use
  Company Number: B0641288A

PATIENT
  Age: 68 Year
  Sex: Male

DRUGS (4)
  1. AMOXICILLIN [Suspect]
     Dosage: 1500MG PER DAY
     Route: 048
     Dates: start: 20100223, end: 20100224
  2. SIMVASTATIN [Suspect]
     Dosage: 40MG PER DAY
     Route: 048
     Dates: start: 20080101
  3. RAMIPRIL [Concomitant]
     Indication: HYPERTENSION
     Dosage: 5MG PER DAY
     Route: 048
  4. ASPIRIN [Concomitant]
     Indication: ANTICOAGULANT THERAPY
     Dosage: 75MG PER DAY
     Route: 048

REACTIONS (5)
  - AGGRESSION [None]
  - ANXIETY [None]
  - DISORIENTATION [None]
  - FEELING ABNORMAL [None]
  - PANIC REACTION [None]
